FAERS Safety Report 7463549-3 (Version None)
Quarter: 2011Q2

REPORT INFORMATION
  Report Type: 
  Country: None (occurrence: None)
  Receive Date: 20110506
  Receipt Date: 20110429
  Transmission Date: 20111010
  Serious: Yes (Hospitalization)
  Sender: FDA-Public Use
  Company Number: PHHY2011US36609

PATIENT
  Sex: Male

DRUGS (1)
  1. METOPROLOL SUCCINATE [Suspect]
     Dosage: 200 MG, QD

REACTIONS (3)
  - INCREASED UPPER AIRWAY SECRETION [None]
  - PNEUMONIA [None]
  - PRODUCTIVE COUGH [None]
